FAERS Safety Report 4764965-0 (Version None)
Quarter: 2005Q3

REPORT INFORMATION
  Report Type: 
  Country: None (occurrence: None)
  Receive Date: 20050909
  Receipt Date: 20050829
  Transmission Date: 20060218
  Serious: Yes (Hospitalization)
  Sender: FDA-Public Use
  Company Number: CN-ROCHE-415715

PATIENT
  Age: 37 Year
  Sex: Male

DRUGS (1)
  1. INTERFERON ALFA [Suspect]
     Route: 058
     Dates: start: 20040513, end: 20040525

REACTIONS (3)
  - AFFECTIVE DISORDER [None]
  - BIPOLAR DISORDER [None]
  - MANIA [None]
